FAERS Safety Report 11055454 (Version 1)
Quarter: 2015Q2

REPORT INFORMATION
  Report Type: Spontaneous
  Country: US (occurrence: None)
  Receive Date: 20150421
  Receipt Date: 20150421
  Transmission Date: 20150821
  Serious: Yes (Other)
  Sender: FDA-Public Use
  Company Number: None

PATIENT
  Age: 66 Year
  Sex: Male
  Weight: 74.84 kg

DRUGS (4)
  1. HYDROCHLOROTHIAZIDE. [Concomitant]
     Active Substance: HYDROCHLOROTHIAZIDE
  2. VITAMIN SUPPLEMENT [Concomitant]
     Active Substance: VITAMINS
  3. NICOTINE TRANSDERMAL PATCH [Suspect]
     Active Substance: NICOTINE
     Indication: SMOKING CESSATION THERAPY
     Dosage: APPLIED TO A SURFACE, USUALLY THE SKIN, ONCE
  4. CENTRUM SILVER [Concomitant]
     Active Substance: VITAMINS

REACTIONS (2)
  - Skin irritation [None]
  - Product quality issue [None]

NARRATIVE: CASE EVENT DATE: 20150419
